FAERS Safety Report 18233669 (Version 2)
Quarter: 2020Q3

REPORT INFORMATION
  Report Type: Report from Study
  Country: US (occurrence: US)
  Receive Date: 20200904
  Receipt Date: 20200910
  Transmission Date: 20201103
  Serious: Yes (Hospitalization)
  Sender: FDA-Public Use
  Company Number: US-SHIRE-US202024662

PATIENT
  Sex: Female
  Weight: 44.99 kg

DRUGS (8)
  1. GATTEX [Suspect]
     Active Substance: TEDUGLUTIDE\WATER
     Dosage: 0.225 MILLILITER, 1X/DAY:QD
     Route: 050
  2. GATTEX [Suspect]
     Active Substance: TEDUGLUTIDE\WATER
     Indication: SHORT-BOWEL SYNDROME
     Dosage: 0.225 MILLIGRAM, 1X/DAY:QD
     Route: 050
  3. GATTEX [Suspect]
     Active Substance: TEDUGLUTIDE\WATER
     Indication: SHORT-BOWEL SYNDROME
     Dosage: 0.225 MILLIGRAM, 1X/DAY:QD
     Route: 050
  4. GATTEX [Suspect]
     Active Substance: TEDUGLUTIDE\WATER
     Dosage: 0.225 MILLILITER, 1X/DAY:QD
     Route: 050
  5. GATTEX [Suspect]
     Active Substance: TEDUGLUTIDE\WATER
     Indication: SHORT-BOWEL SYNDROME
     Dosage: 0.225 MILLIGRAM, 1X/DAY:QD
     Route: 050
  6. GATTEX [Suspect]
     Active Substance: TEDUGLUTIDE\WATER
     Dosage: 0.225 MILLILITER, 1X/DAY:QD
     Route: 050
  7. GATTEX [Suspect]
     Active Substance: TEDUGLUTIDE\WATER
     Dosage: 0.225 MILLILITER, 1X/DAY:QD
     Route: 050
  8. GATTEX [Suspect]
     Active Substance: TEDUGLUTIDE\WATER
     Indication: SHORT-BOWEL SYNDROME
     Dosage: 0.225 MILLIGRAM, 1X/DAY:QD
     Route: 050

REACTIONS (3)
  - Poor quality device used [Unknown]
  - Cystitis [Unknown]
  - Product use complaint [Unknown]
